FAERS Safety Report 7864397-2 (Version None)
Quarter: 2011Q4

REPORT INFORMATION
  Report Type: 
  Country: None (occurrence: None)
  Receive Date: 20111028
  Receipt Date: 20111017
  Transmission Date: 20120403
  Serious: Yes (Hospitalization, Disabling, Other)
  Sender: FDA-Public Use
  Company Number: PHHY2011BR84087

PATIENT
  Age: 60 Year
  Sex: Male

DRUGS (10)
  1. AMLODIPINE [Concomitant]
     Indication: BLOOD PRESSURE
     Dosage: 2 DF, QD
  2. APRESOLINE [Suspect]
     Indication: HYPERTENSION
     Dosage: 25 MG, TID
  3. APRESOLINE [Suspect]
     Dosage: 50 MG (HALF TABLETS 3 TIMES/DAY)
  4. SEROQUEL [Concomitant]
     Indication: ISCHAEMIA
     Dosage: UNK
     Dates: start: 20100101
  5. CLONIDINE HYDROCHLORIDE [Concomitant]
     Indication: HYPERTENSION
     Dosage: 2 DF, QD
     Route: 048
  6. DIOVAN [Suspect]
     Indication: HYPERTENSION
     Dosage: 1 DF, BID
  7. ENALAPRIL MALEATE [Concomitant]
     Indication: HYPERTENSION
     Dosage: 2 DF, QD
     Route: 048
  8. ASPIRIN [Concomitant]
     Dosage: 1 DF, QD
     Route: 048
     Dates: start: 20100101
  9. LIPITOR [Concomitant]
     Indication: HYPERTENSION
     Dosage: 1 DF, QID
     Route: 048
     Dates: start: 20100101
  10. MACRODANTIN [Concomitant]
     Indication: URINARY TRACT INFECTION
     Dosage: UNK
     Route: 048
     Dates: start: 20100101

REACTIONS (12)
  - CEREBROVASCULAR ACCIDENT [None]
  - PNEUMONIA [None]
  - INFARCTION [None]
  - URINARY TRACT INFECTION BACTERIAL [None]
  - URINARY RETENTION [None]
  - PROSTATOMEGALY [None]
  - URINARY TRACT INFECTION [None]
  - MOVEMENT DISORDER [None]
  - PROSTATIC DISORDER [None]
  - WRONG TECHNIQUE IN DRUG USAGE PROCESS [None]
  - NOSOCOMIAL INFECTION [None]
  - LUNG DISORDER [None]
